FAERS Safety Report 5009895-4 (Version None)
Quarter: 2006Q2

REPORT INFORMATION
  Report Type: 
  Country: None (occurrence: None)
  Receive Date: 20060524
  Receipt Date: 20060517
  Transmission Date: 20061013
  Serious: Yes (Other)
  Sender: FDA-Public Use
  Company Number: PHRM2006FR01632

PATIENT
  Age: 78 Year
  Sex: Male

DRUGS (4)
  1. TAREG [Suspect]
     Indication: HYPERTENSION
     Route: 048
     Dates: start: 20040101
  2. PRAVASTATIN [Concomitant]
     Route: 048
  3. ASPIRIN [Concomitant]
  4. STILNOX [Concomitant]
     Route: 048

REACTIONS (2)
  - DYSPNOEA [None]
  - INTERSTITIAL LUNG DISEASE [None]
